FAERS Safety Report 6427637-2 (Version None)
Quarter: 2009Q4

REPORT INFORMATION
  Report Type: 
  Country: None (occurrence: None)
  Receive Date: 20091104
  Receipt Date: 20091023
  Transmission Date: 20100525
  Serious: Yes (Other)
  Sender: FDA-Public Use
  Company Number: AT-GILEAD-2009-0024479

PATIENT
  Age: 34 Year
  Sex: Female

DRUGS (121)
  1. VIREAD [Suspect]
     Indication: HIV INFECTION
     Dates: start: 20020131, end: 20031103
  2. VIREAD [Suspect]
     Dates: start: 20031103, end: 20040721
  3. VIREAD [Suspect]
     Dates: start: 20040721, end: 20040820
  4. VIREAD [Suspect]
     Dates: start: 20040820, end: 20041125
  5. VIREAD [Suspect]
     Dates: start: 20041129, end: 20050225
  6. VIREAD [Suspect]
     Dates: start: 20050225, end: 20050330
  7. VIREAD [Suspect]
     Dates: start: 20050329, end: 20050402
  8. VIREAD [Suspect]
     Dates: start: 20050402, end: 20050405
  9. VIREAD [Suspect]
     Dates: start: 20061221, end: 20070103
  10. DARUNAVIR [Concomitant]
     Dates: start: 20080131, end: 20090917
  11. RALTEGRAVIR [Concomitant]
     Dates: start: 20080101
  12. EPIVIR [Concomitant]
     Dates: start: 19960417, end: 19960625
  13. EPIVIR [Concomitant]
     Dates: start: 19960716, end: 19961107
  14. EPIVIR [Concomitant]
     Dates: start: 19961211, end: 19970429
  15. EPIVIR [Concomitant]
     Dates: start: 19980122, end: 19980227
  16. EPIVIR [Concomitant]
     Dates: start: 19980710, end: 19980724
  17. EPIVIR [Concomitant]
     Dates: start: 19990317, end: 19990427
  18. EPIVIR [Concomitant]
     Dates: start: 19990506, end: 19991002
  19. EPIVIR [Concomitant]
     Dates: start: 19991016, end: 19991028
  20. EPIVIR [Concomitant]
     Dates: start: 19991111, end: 20000210
  21. EPIVIR [Concomitant]
     Dates: start: 20000221, end: 20000703
  22. EPIVIR [Concomitant]
     Dates: start: 20001008, end: 20010315
  23. EPIVIR [Concomitant]
     Dates: start: 20010424, end: 20030424
  24. EPIVIR [Concomitant]
     Dates: start: 20030424, end: 20040721
  25. EPIVIR [Concomitant]
     Dates: start: 20040721, end: 20040820
  26. EPIVIR [Concomitant]
     Dates: start: 20040820, end: 20041125
  27. EPIVIR [Concomitant]
     Dates: start: 20041125, end: 20050225
  28. EPIVIR [Concomitant]
     Dates: start: 20050225, end: 20070917
  29. EPIVIR [Concomitant]
     Dates: start: 20070917, end: 20080131
  30. VIDEX [Concomitant]
     Dates: start: 20000527, end: 20000615
  31. VIDEX [Concomitant]
     Dates: start: 20000616, end: 20000703
  32. VIDEX [Concomitant]
     Dates: start: 20001008, end: 20010219
  33. VIDEX [Concomitant]
     Dates: start: 20010220, end: 20010410
  34. VIDEX [Concomitant]
     Dates: start: 20010418, end: 20030424
  35. VIDEX [Concomitant]
     Dates: start: 20030424, end: 20030728
  36. VIDEX [Concomitant]
     Dates: start: 20030728, end: 20041125
  37. VIDEX [Concomitant]
     Dates: start: 20041129, end: 20050410
  38. VIDEX [Concomitant]
     Dates: start: 20050410, end: 20060309
  39. VIDEX [Concomitant]
     Dates: start: 20060309, end: 20061220
  40. VIDEX [Concomitant]
     Dates: start: 20061220, end: 20070103
  41. VIDEX [Concomitant]
     Dates: start: 20070104, end: 20070322
  42. VIDEX [Concomitant]
     Dates: start: 20070323, end: 20080131
  43. KALETRA [Concomitant]
     Dates: start: 20010418, end: 20030801
  44. KALETRA [Concomitant]
     Dates: start: 20030801, end: 20041125
  45. KALETRA [Concomitant]
     Dates: start: 20041129, end: 20060309
  46. KALETRA [Concomitant]
     Dates: start: 20060309, end: 20080131
  47. FUZEON [Concomitant]
     Dates: start: 20050407, end: 20061220
  48. FUZEON [Concomitant]
     Dates: start: 20070103, end: 20080131
  49. VIRAMUNE [Concomitant]
     Dates: start: 19980710, end: 19980724
  50. VIRAMUNE [Concomitant]
     Dates: start: 19990317, end: 19990427
  51. VIRAMUNE [Concomitant]
     Dates: start: 19990506, end: 19990814
  52. VIRAMUNE [Concomitant]
     Dates: start: 20000527, end: 20000703
  53. VIRAMUNE [Concomitant]
     Dates: start: 20010418, end: 20030722
  54. COTRIBENE [Concomitant]
     Dates: start: 20000924, end: 20040414
  55. COTRIBENE [Concomitant]
     Dates: start: 20040414, end: 20040811
  56. COTRIBENE [Concomitant]
     Dates: start: 20040811, end: 20041021
  57. COTRIBENE [Concomitant]
     Dates: start: 20041021, end: 20090703
  58. COTRIBENE [Concomitant]
     Dates: start: 19980122, end: 20000703
  59. HEPAMERZ [Concomitant]
     Dates: start: 20031030, end: 20040617
  60. HEPAMERZ [Concomitant]
     Dates: start: 20050331, end: 20050725
  61. HEPAMERZ [Concomitant]
     Dates: start: 20050725, end: 20070716
  62. HEPAMERZ [Concomitant]
     Dates: start: 20080313, end: 20080331
  63. HEPAMERZ [Concomitant]
     Dates: start: 20080331, end: 20080422
  64. HEPAMERZ [Concomitant]
     Dates: start: 20090102, end: 20090104
  65. HEPAMERZ [Concomitant]
     Dates: start: 20090105, end: 20090724
  66. HEPAMERZ [Concomitant]
     Dates: start: 20090624, end: 20090626
  67. MUCOBENE [Concomitant]
     Dates: start: 20041122, end: 20041127
  68. MUCOBENE [Concomitant]
     Dates: start: 20050908, end: 20050919
  69. ALDARA CREME [Concomitant]
     Dates: start: 20021217, end: 20030107
  70. ALDARA CREME [Concomitant]
     Dates: start: 20030808, end: 20031028
  71. ALDARA CREME [Concomitant]
     Dates: start: 20040415, end: 20040507
  72. ALDARA CREME [Concomitant]
     Dates: start: 20040817, end: 20041015
  73. ALDARA CREME [Concomitant]
     Dates: start: 20041025, end: 20050117
  74. BEPANTHEN [Concomitant]
  75. SUBSTITOL [Concomitant]
     Dates: start: 20040120, end: 20041116
  76. SUBSTITOL [Concomitant]
     Dates: start: 20041116, end: 20090915
  77. SUBSTITOL [Concomitant]
     Dates: start: 20020926, end: 20020928
  78. SUBSTITOL [Concomitant]
     Dates: start: 20020928, end: 20040120
  79. CIPRALEX [Concomitant]
     Dates: start: 20021230, end: 20030121
  80. CIPRALEX [Concomitant]
     Dates: start: 20030121, end: 20060403
  81. SPORANOX [Concomitant]
  82. AGYR [Concomitant]
     Dates: start: 20040810, end: 20040815
  83. DALACIN [Concomitant]
     Dates: start: 20040408, end: 20040410
  84. DALACIN [Concomitant]
     Dates: start: 20050207, end: 20050212
  85. CLAVAMOX [Concomitant]
     Dates: start: 20040617, end: 20040621
  86. AKTIFERRIN [Concomitant]
     Dates: start: 19991111, end: 20000605
  87. AKTIFERRIN [Concomitant]
     Dates: start: 20001030, end: 20010216
  88. AKTIFERRIN [Concomitant]
     Dates: start: 20050428, end: 20050725
  89. AKTIFERRIN [Concomitant]
     Dates: start: 20090420, end: 20090724
  90. LEXOTANIL [Concomitant]
     Dates: start: 20020226, end: 20021230
  91. LEXOTANIL [Concomitant]
     Dates: start: 20021230, end: 20030213
  92. ERYPO [Concomitant]
     Dates: start: 20030318, end: 20030902
  93. ERYPO [Concomitant]
     Dates: start: 20050420, end: 20051118
  94. SUPRADYN [Concomitant]
     Dates: start: 19990810, end: 20000605
  95. SUPRADYN [Concomitant]
     Dates: start: 20001124, end: 20040617
  96. SUPRADYN [Concomitant]
     Dates: start: 20050928, end: 20051201
  97. RIBOFLAVIN TAB [Concomitant]
     Dates: start: 20010622, end: 20020405
  98. RIBOFLAVIN TAB [Concomitant]
     Dates: start: 20020726, end: 20040617
  99. OLEOVIT D3 [Concomitant]
     Dates: start: 20040712, end: 20040811
  100. OLEOVIT D3 [Concomitant]
     Dates: start: 20050525, end: 20050630
  101. NEUROBION [Concomitant]
     Dates: start: 20020726, end: 20020814
  102. NEUROBION [Concomitant]
     Dates: start: 20020906, end: 20040617
  103. LAEVOLAC [Concomitant]
     Dates: start: 20020913, end: 20030606
  104. LAEVOLAC [Concomitant]
     Dates: start: 20030606, end: 20031030
  105. LAEVOLAC [Concomitant]
     Dates: start: 20031030, end: 20040224
  106. LASILACTON [Concomitant]
     Dates: start: 20030410, end: 20030424
  107. LASILACTON [Concomitant]
     Dates: start: 20030424, end: 20030514
  108. LASILACTON [Concomitant]
     Dates: start: 20030514, end: 20040409
  109. LASILACTON [Concomitant]
     Dates: start: 20070402, end: 20070719
  110. LASILACTON [Concomitant]
     Dates: start: 20070719, end: 20080114
  111. LASILACTON [Concomitant]
     Dates: start: 20080114, end: 20090911
  112. LASILACTON [Concomitant]
     Dates: start: 20090918, end: 20091012
  113. XYLOCAINE [Concomitant]
     Dates: start: 20040607, end: 20040617
  114. LAEVOLAC [Concomitant]
     Dates: start: 20040224, end: 20070124
  115. LAEVOLAC [Concomitant]
     Dates: start: 20080125, end: 20081006
  116. TRICEF [Concomitant]
     Dates: start: 20020903, end: 20020907
  117. TRICEF [Concomitant]
     Dates: start: 20020915, end: 20020922
  118. TRICEF [Concomitant]
     Dates: start: 20030305, end: 20030309
  119. TRICEF [Concomitant]
     Dates: start: 20030424, end: 20030430
  120. TRICEF [Concomitant]
     Dates: start: 20091009, end: 20091015
  121. METOCLOPRAMIDE HYDROCHLORIDE [Concomitant]
     Dates: start: 20020701, end: 20030530

REACTIONS (13)
  - BLOOD CREATINE PHOSPHOKINASE INCREASED [None]
  - FANCONI SYNDROME ACQUIRED [None]
  - FEMORAL NECK FRACTURE [None]
  - FEMUR FRACTURE [None]
  - FRACTURED SACRUM [None]
  - GLOMERULAR FILTRATION RATE DECREASED [None]
  - HEPATIC ENCEPHALOPATHY [None]
  - HUMERUS FRACTURE [None]
  - HYDROCHOLECYSTIS [None]
  - MULTIPLE FRACTURES [None]
  - OSTEOPOROSIS [None]
  - PANCREATITIS [None]
  - SPINAL COMPRESSION FRACTURE [None]
